FAERS Safety Report 22087425 (Version 1)
Quarter: 2023Q1

REPORT INFORMATION
  Report Type: Spontaneous
  Country: None (occurrence: CN)
  Receive Date: 20230313
  Receipt Date: 20230313
  Transmission Date: 20230418
  Serious: Yes (Other)
  Sender: FDA-Public Use
  Company Number: CN-Oxford Pharmaceuticals, LLC-2138979

PATIENT
  Age: 34 Year
  Sex: Female

DRUGS (3)
  1. HYDROCHLOROTHIAZIDE [Suspect]
     Active Substance: HYDROCHLOROTHIAZIDE
     Indication: Weight decreased
  2. TOPIRAMATE [Interacting]
     Active Substance: TOPIRAMATE
  3. FLUOXETINE [Interacting]
     Active Substance: FLUOXETINE HYDROCHLORIDE

REACTIONS (3)
  - Acute myopia [Recovered/Resolved]
  - Drug interaction [Unknown]
  - Off label use [Unknown]
